FAERS Safety Report 9424512 (Version 1)
Quarter: 2013Q3

REPORT INFORMATION
  Report Type: Spontaneous
  Country: US (occurrence: None)
  Receive Date: 20130726
  Receipt Date: 20130726
  Transmission Date: 20140515
  Serious: No
  Sender: FDA-Public Use
  Company Number: None

PATIENT
  Age: 71 Year
  Sex: Female
  Weight: 78 kg

DRUGS (2)
  1. APIDRA [Suspect]
     Dosage: 100 UNITS PER ML.
  2. LANTUS [Suspect]
     Dosage: 100 UNITS PER ML.

REACTIONS (5)
  - Drug prescribing error [None]
  - Drug dispensing error [None]
  - Intercepted drug administration error [None]
  - Wrong drug administered [None]
  - Product name confusion [None]
